FAERS Safety Report 6430938-5 (Version None)
Quarter: 2009Q4

REPORT INFORMATION
  Report Type: 
  Country: None (occurrence: None)
  Receive Date: 20091105
  Receipt Date: 20091105
  Transmission Date: 20100525
  Serious: Yes (Other)
  Sender: FDA-Public Use
  Company Number: None

PATIENT
  Sex: Male
  Weight: 75 kg

DRUGS (4)
  1. CHANTIX [Suspect]
     Indication: TOBACCO ABUSE
     Dosage: 0.5MG BID ORAL
     Route: 048
     Dates: start: 20091006, end: 20091012
  2. XANAX [Concomitant]
  3. LEXAPRO [Concomitant]
  4. INDERAL [Concomitant]

REACTIONS (3)
  - LACERATION [None]
  - SELF INJURIOUS BEHAVIOUR [None]
  - SUICIDAL IDEATION [None]
